FAERS Safety Report 15536900 (Version 1)
Quarter: 2018Q4

REPORT INFORMATION
  Report Type: Spontaneous
  Country: US (occurrence: US)
  Receive Date: 20181022
  Receipt Date: 20181022
  Transmission Date: 20190205
  Serious: No
  Sender: FDA-Public Use
  Company Number: US-PFIZER INC-2018427360

PATIENT
  Sex: Female

DRUGS (2)
  1. LYRICA [Suspect]
     Active Substance: PREGABALIN
     Indication: DIABETIC NEUROPATHY
     Dosage: UNK UNK, 1X/DAY (DIDN^T TAKE IT ONCE IN A DAY, TAKES IT IN NIGHT TIME)
  2. LYRICA [Suspect]
     Active Substance: PREGABALIN
     Dosage: UNK (TAKE 2)

REACTIONS (2)
  - Product use issue [Unknown]
  - Fatigue [Unknown]
